FAERS Safety Report 6926126-6 (Version None)
Quarter: 2010Q3

REPORT INFORMATION
  Report Type: 
  Country: None (occurrence: None)
  Receive Date: 20100816
  Receipt Date: 20100806
  Transmission Date: 20110219
  Serious: Yes (Hospitalization)
  Sender: FDA-Public Use
  Company Number: FR-AMGEN-QUU430301

PATIENT
  Sex: Female
  Weight: 60 kg

DRUGS (3)
  1. ENBREL [Suspect]
     Indication: JUVENILE ARTHRITIS
     Route: 058
     Dates: start: 20040211, end: 20070928
  2. METHOTREXATE [Concomitant]
     Indication: JUVENILE ARTHRITIS
     Dosage: 10-15 MG WEEKLY
     Route: 048
     Dates: start: 20040211, end: 20080201
  3. CORTANCYL [Concomitant]
     Indication: JUVENILE ARTHRITIS
     Route: 048
     Dates: start: 20040211, end: 20080201

REACTIONS (1)
  - SARCOIDOSIS [None]
